FAERS Safety Report 20574066 (Version 1)
Quarter: 2022Q1

REPORT INFORMATION
  Report Type: Spontaneous
  Country: PL (occurrence: PL)
  Receive Date: 20220309
  Receipt Date: 20220309
  Transmission Date: 20220423
  Serious: Yes (Life-Threatening, Hospitalization, Other)
  Sender: FDA-Public Use
  Company Number: PL-ABBVIE-22K-129-4307299-00

PATIENT
  Age: 34 Year
  Sex: Male

DRUGS (2)
  1. TESTOSTERONE [Suspect]
     Active Substance: TESTOSTERONE
     Indication: Physical fitness training
     Route: 061
  2. STANOZOLOL [Suspect]
     Active Substance: STANOZOLOL
     Indication: Physical fitness training
     Route: 065

REACTIONS (13)
  - Renal artery thrombosis [Recovered/Resolved]
  - Thrombocytosis [Recovered/Resolved]
  - Left ventricular hypertrophy [Recovered/Resolved]
  - Renal infarct [Recovered/Resolved]
  - Acute kidney injury [Recovered/Resolved]
  - Retroperitoneal haematoma [Recovered/Resolved]
  - Kidney rupture [Recovered/Resolved]
  - Fat tissue decreased [Unknown]
  - Muscle hypertrophy [Unknown]
  - Testicular atrophy [Unknown]
  - Substance use [Unknown]
  - Intentional product misuse [Unknown]
  - Product use in unapproved indication [Unknown]
